FAERS Safety Report 23365776 (Version 1)
Quarter: 2024Q1

REPORT INFORMATION
  Report Type: Spontaneous
  Country: US (occurrence: None)
  Receive Date: 20240103
  Receipt Date: 20240103
  Transmission Date: 20240409
  Serious: No
  Sender: FDA-Public Use
  Company Number: None

PATIENT
  Age: 54 Year
  Sex: Female

DRUGS (1)
  1. HUMIRA [Suspect]
     Active Substance: ADALIMUMAB
     Indication: Rheumatoid arthritis
     Dosage: OTHER FREQUENCY : Q 2WKS;?
     Dates: start: 202310

REACTIONS (4)
  - Illness [None]
  - Nasal congestion [None]
  - Cough [None]
  - Therapy interrupted [None]
